FAERS Safety Report 23455401 (Version 1)
Quarter: 2024Q1

REPORT INFORMATION
  Report Type: Other
  Country: US (occurrence: None)
  Receive Date: 20240130
  Receipt Date: 20240130
  Transmission Date: 20240409
  Serious: Yes (Hospitalization, Other)
  Sender: FDA-Public Use
  Company Number: US-ROCHE-2141546

PATIENT
  Age: 81 Year
  Sex: Female
  Weight: 70.37 kg

DRUGS (17)
  1. AVASTIN [Suspect]
     Active Substance: BEVACIZUMAB
     Indication: Neovascular age-related macular degeneration
     Dosage: RIGHT EYE ;ONGOING: NO
     Route: 065
     Dates: start: 201010
  2. AVASTIN [Suspect]
     Active Substance: BEVACIZUMAB
     Dosage: ONGOING: UNKNOWN
     Route: 065
     Dates: start: 2018
  3. LUCENTIS [Suspect]
     Active Substance: RANIBIZUMAB
     Indication: Neovascular age-related macular degeneration
     Dosage: ONGOING: NO
     Route: 050
  4. LUCENTIS [Suspect]
     Active Substance: RANIBIZUMAB
     Indication: Neovascular age-related macular degeneration
     Dosage: ONGOING: YES
     Route: 050
  5. LUCENTIS [Suspect]
     Active Substance: RANIBIZUMAB
     Indication: Choroidal neovascularisation
     Dosage: ONGOING: NO
     Route: 050
  6. LUCENTIS [Suspect]
     Active Substance: RANIBIZUMAB
     Indication: Neovascular age-related macular degeneration
  7. BETADINE [Suspect]
     Active Substance: POVIDONE-IODINE
     Indication: Product used for unknown indication
     Route: 065
  8. LUCENTIS [Suspect]
     Active Substance: RANIBIZUMAB
     Indication: Neovascular age-related macular degeneration
     Route: 050
  9. LUCENTIS [Suspect]
     Active Substance: RANIBIZUMAB
     Indication: Choroidal neovascularisation
  10. EYLEA [Concomitant]
     Active Substance: AFLIBERCEPT
     Dosage: ONGOING: UNKNOWN
  11. BREO ELLIPTA [Concomitant]
     Active Substance: FLUTICASONE FUROATE\VILANTEROL TRIFENATATE
     Indication: Asthma
     Dosage: ONGOING: YES
  12. ATORVASTATIN [Concomitant]
     Active Substance: ATORVASTATIN
     Indication: Blood cholesterol increased
  13. ASPIRIN [Concomitant]
     Active Substance: ASPIRIN
     Dosage: PER DAY ;ONGOING: YES
  14. LISINOPRIL [Concomitant]
     Active Substance: LISINOPRIL
     Indication: Hypertension
     Dosage: ONGOING: YES
  15. HYDROCHLOROTHIAZIDE [Concomitant]
     Active Substance: HYDROCHLOROTHIAZIDE
     Dosage: ONGOING: YES
  16. JANUMET [Concomitant]
     Active Substance: METFORMIN HYDROCHLORIDE\SITAGLIPTIN PHOSPHATE
     Indication: Diabetes mellitus
     Dosage: 500 MG/1000 MG
  17. VITAMIN D3 [Concomitant]
     Active Substance: CHOLECALCIFEROL
     Route: 048
     Dates: start: 2009

REACTIONS (13)
  - Uterine prolapse [Recovered/Resolved]
  - Cataract [Recovered/Resolved]
  - Visual impairment [Not Recovered/Not Resolved]
  - Amnesia [Unknown]
  - Weight decreased [Not Recovered/Not Resolved]
  - Off label use [Unknown]
  - Drug ineffective [Unknown]
  - Macular degeneration [Not Recovered/Not Resolved]
  - Abdominal discomfort [Recovered/Resolved]
  - Eyelid injury [Not Recovered/Not Resolved]
  - Rhinorrhoea [Not Recovered/Not Resolved]
  - Lacrimation increased [Not Recovered/Not Resolved]
  - Eye irritation [Not Recovered/Not Resolved]

NARRATIVE: CASE EVENT DATE: 20140101
